FAERS Safety Report 8984049 (Version 1)
Quarter: 2012Q4

REPORT INFORMATION
  Report Type: Spontaneous
  Country: US (occurrence: None)
  Receive Date: 20121212
  Receipt Date: 20121212
  Transmission Date: 20130627
  Serious: Yes (Death, Hospitalization)
  Sender: FDA-Public Use
  Company Number: OSC-2012-0336

PATIENT
  Age: 64 Year
  Sex: Female

DRUGS (13)
  1. H.P. ACTHAR GEL (ADRENOCORTICOTROPIC HORMONE) GEL FOR INJECTION, 80U/ML [Suspect]
     Indication: MULTIPLE SCLEROSIS RELAPSE
     Dates: start: 20121121
  2. TYSABRI [Concomitant]
  3. ADDERALL (AMFETAMINE ASPARTATE, AMFETAMINE SULFATE, DEXAMFETAMINE SACCHARATE, DEXAMFETAMINE SULFATE) [Concomitant]
  4. AMBIEN (ZOLPIDEM TARTRATE) [Concomitant]
  5. FIORICET (BUTALBITAL, CAFFEINE, PARACETAMOL) [Concomitant]
  6. FLEXERIL (CYCLOBENZAPRINE HYDROCHLORIDE) [Concomitant]
  7. LANTUS (INSULIN GLARGINE) [Concomitant]
  8. LASIX (FUROSEMIDE) [Concomitant]
  9. CYMBALTA (DULOXETINE HYDROCHLORIDE) [Concomitant]
  10. DETROL LA (TOLTERODINE L-TARTRATE) [Concomitant]
  11. PEPCID (FAMOTIDINE) [Concomitant]
  12. LIPITOR (ATORVASTATIN CALCIUM) [Concomitant]
  13. LISINOPRIL (LISINOPRIL) [Concomitant]

REACTIONS (2)
  - Cerebrovascular accident [None]
  - Malaise [None]
